FAERS Safety Report 5033566-1 (Version None)
Quarter: 2006Q2

REPORT INFORMATION
  Report Type: 
  Country: None (occurrence: None)
  Receive Date: 20060623
  Receipt Date: 20060613
  Transmission Date: 20061013
  Serious: Yes (Death, Hospitalization)
  Sender: FDA-Public Use
  Company Number: FR-ROCHE-451515

PATIENT
  Age: 66 Year
  Sex: Female
  Weight: 55 kg

DRUGS (8)
  1. CAPECITABINE [Suspect]
     Indication: METASTATIC NEOPLASM
     Route: 048
     Dates: start: 20060414, end: 20060422
  2. SKENAN [Concomitant]
     Dates: start: 20060222
  3. NEURONTIN [Concomitant]
     Dates: start: 20060305
  4. XATRAL [Concomitant]
     Dates: start: 20060216
  5. FORLAX [Concomitant]
     Dates: start: 20060216, end: 20060401
  6. LOXEN [Concomitant]
     Dates: start: 20060217
  7. PARACETAMOL [Concomitant]
     Dates: start: 20060407
  8. FRAXODI [Concomitant]
     Dates: start: 20060215

REACTIONS (2)
  - INTESTINAL ISCHAEMIA [None]
  - PERIPHERAL ISCHAEMIA [None]
